FAERS Safety Report 6260081-X (Version None)
Quarter: 2009Q3

REPORT INFORMATION
  Report Type: 
  Country: None (occurrence: None)
  Receive Date: 20090708
  Receipt Date: 20090601
  Transmission Date: 20100115
  Serious: Yes (Other)
  Sender: FDA-Public Use
  Company Number: US-PURDUE-USA-2009-0038819

PATIENT
  Sex: Male
  Weight: 90.703 kg

DRUGS (1)
  1. OXYCONTIN [Suspect]
     Indication: BACK PAIN
     Dosage: 80 MG, QID
     Dates: start: 20011219, end: 20050115

REACTIONS (1)
  - MYOCARDIAL INFARCTION [None]
